FAERS Safety Report 4824172-X (Version None)
Quarter: 2005Q4

REPORT INFORMATION
  Report Type: 
  Country: None (occurrence: None)
  Receive Date: 20051109
  Receipt Date: 20030923
  Transmission Date: 20060501
  Serious: Yes (Hospitalization)
  Sender: FDA-Public Use
  Company Number: US-ABBOTT-03P-163-0234501-00

PATIENT
  Sex: Male

DRUGS (4)
  1. RITONAVIR SOFT GELATIN CAPSULES [Suspect]
     Indication: HIV INFECTION
     Route: 048
     Dates: start: 20021218, end: 20030714
  2. TIPRANAVIR [Concomitant]
     Indication: HIV INFECTION
     Route: 048
     Dates: start: 20021218, end: 20030714
  3. DAPSONE [Concomitant]
     Indication: ANTIBIOTIC PROPHYLAXIS
     Route: 048
     Dates: start: 19971014
  4. IBUPROFEN [Concomitant]
     Indication: PAIN
     Dates: start: 20030604

REACTIONS (4)
  - OSTEONECROSIS [None]
  - POST PROCEDURAL HAEMATOMA [None]
  - PYREXIA [None]
  - STAPHYLOCOCCAL INFECTION [None]
